FAERS Safety Report 10151293 (Version 1)
Quarter: 2014Q2

REPORT INFORMATION
  Report Type: Spontaneous
  Country: US (occurrence: US)
  Receive Date: 20140502
  Receipt Date: 20140502
  Transmission Date: 20141212
  Serious: No
  Sender: FDA-Public Use
  Company Number: US-ASTRAZENECA-2013SE49966

PATIENT
  Sex: Female

DRUGS (1)
  1. PRILOSEC OTC [Suspect]
     Route: 048

REACTIONS (5)
  - Foreign body [Recovered/Resolved]
  - Gastric disorder [Not Recovered/Not Resolved]
  - Hypoaesthesia [Not Recovered/Not Resolved]
  - Dizziness [Not Recovered/Not Resolved]
  - Paraesthesia [Not Recovered/Not Resolved]
